FAERS Safety Report 13278742 (Version 2)
Quarter: 2017Q1

REPORT INFORMATION
  Report Type: Spontaneous
  Country: PL (occurrence: PL)
  Receive Date: 20170228
  Receipt Date: 20170322
  Transmission Date: 20170428
  Serious: Yes (Other)
  Sender: FDA-Public Use
  Company Number: PL-BAYER-2017-013040

PATIENT
  Age: 63 Year
  Sex: Male

DRUGS (1)
  1. NEXAVAR [Suspect]
     Active Substance: SORAFENIB
     Indication: METASTATIC RENAL CELL CARCINOMA
     Dosage: 800 MG, QD
     Route: 048
     Dates: start: 201202, end: 201305

REACTIONS (6)
  - Malaise [None]
  - Metastatic renal cell carcinoma [None]
  - Palmar-plantar erythrodysaesthesia syndrome [None]
  - Hypertension [None]
  - Decreased appetite [None]
  - Weight decreased [None]
